FAERS Safety Report 8181049 (Version 3)
Quarter: 2012Q4

REPORT INFORMATION
  Report Type: 
  Country: FR (occurrence: FR)
  Receive Date: 20111014
  Receipt Date: 20120919
  Transmission Date: 20130627
  Serious: Yes (Hospitalization)
  Sender: FDA-Public Use
  Company Number: FR-UCBSA-043076

PATIENT
  Age: 17 Year
  Sex: Male

DRUGS (5)
  1. KEPPRA [Suspect]
     Indication: CONVULSION
     Route: 048
     Dates: start: 20110814, end: 20111002
  2. INEXIUM [Suspect]
     Route: 048
     Dates: end: 20111002
  3. CLAFORAN [Suspect]
     Dates: start: 20110917, end: 20110923
  4. CLAMOXYL [Suspect]
     Dosage: TOTAL DAILY DOSE: 3 G
     Route: 042
     Dates: start: 20110923, end: 20110927
  5. TARGOCID [Concomitant]
     Dosage: TOTAL DAILY DOSE: 1.2 G
     Route: 042
     Dates: start: 20110927, end: 20111002

REACTIONS (3)
  - Agranulocytosis [Not Recovered/Not Resolved]
  - Enterococcal infection [Unknown]
  - Pyrexia [Unknown]
